FAERS Safety Report 23203926 (Version 2)
Quarter: 2023Q4

REPORT INFORMATION
  Report Type: Report from Study
  Country: US (occurrence: US)
  Receive Date: 20231120
  Receipt Date: 20231122
  Transmission Date: 20240110
  Serious: Yes (Hospitalization, Other)
  Sender: FDA-Public Use
  Company Number: US-UCBSA-2023025100

PATIENT
  Age: 52 Year
  Sex: Female

DRUGS (4)
  1. LACOSAMIDE [Suspect]
     Active Substance: LACOSAMIDE
     Indication: Seizure
     Dosage: 200 MILLIGRAM, 2X/DAY (BID)
  2. LACOSAMIDE [Suspect]
     Active Substance: LACOSAMIDE
     Indication: Epilepsy
     Dosage: 50 MILLIGRAM, 2X/DAY (BID)
  3. LACOSAMIDE [Suspect]
     Active Substance: LACOSAMIDE
     Dosage: 50 MILLIGRAM, 1 TAB PM, ONCE DAILY (QD)
  4. LACOSAMIDE [Suspect]
     Active Substance: LACOSAMIDE
     Dosage: 200MG + 50MG - 1T BID

REACTIONS (7)
  - Seizure [Not Recovered/Not Resolved]
  - Cerebrovascular accident [Unknown]
  - Aphasia [Not Recovered/Not Resolved]
  - Drug ineffective [Unknown]
  - Overdose [Unknown]
  - Product availability issue [Unknown]
  - Therapy interrupted [Unknown]

NARRATIVE: CASE EVENT DATE: 20230511
